FAERS Safety Report 12694803 (Version 1)
Quarter: 2016Q3

REPORT INFORMATION
  Report Type: Report from Study
  Country: DE (occurrence: DE)
  Receive Date: 20160829
  Receipt Date: 20160829
  Transmission Date: 20161109
  Serious: Yes (Hospitalization)
  Sender: FDA-Public Use
  Company Number: DE-JNJFOC-20160613119

PATIENT
  Age: 6 Decade
  Sex: Male
  Weight: 103 kg

DRUGS (6)
  1. INFLIXIMAB [Suspect]
     Active Substance: INFLIXIMAB
     Indication: SPONDYLITIS
     Route: 042
     Dates: start: 20160701
  2. SIMPONI [Suspect]
     Active Substance: GOLIMUMAB
     Indication: SPONDYLITIS
     Route: 058
     Dates: start: 20160325, end: 20160525
  3. PANTOZOL [Concomitant]
     Active Substance: PANTOPRAZOLE SODIUM
     Indication: GASTROINTESTINAL DISORDER THERAPY
     Route: 065
  4. DICLOFENAC [Concomitant]
     Active Substance: DICLOFENAC
     Route: 065
  5. NEBIVOLOL. [Concomitant]
     Active Substance: NEBIVOLOL
     Indication: HYPERTENSION
     Route: 065
  6. TILIDINE [Concomitant]
     Active Substance: TILIDINE
     Indication: SPONDYLITIS
     Route: 065
     Dates: start: 20160607

REACTIONS (4)
  - Drug ineffective [Unknown]
  - Arthroscopy [Recovered/Resolved]
  - Influenza like illness [Recovered/Resolved]
  - Chondrocalcinosis [Not Recovered/Not Resolved]

NARRATIVE: CASE EVENT DATE: 20160331
